FAERS Safety Report 8221916 (Version 3)
Quarter: 2013Q1

REPORT INFORMATION
  Report Type: Spontaneous
  Country: US (occurrence: None)
  Receive Date: 20111025
  Receipt Date: 20130222
  Transmission Date: 20140127
  Serious: Yes (Hospitalization, Other)
  Sender: FDA-Public Use
  Company Number: ACO_27269_2011

PATIENT
  Age: 46 Year
  Sex: Female

DRUGS (5)
  1. AMPYRA [Suspect]
     Indication: GAIT DISTURBANCE
     Dosage: 10 MG, BID, ORAL
     Route: 048
     Dates: start: 201103, end: 20110903
  2. TYSABRI [Concomitant]
  3. LEXAPRO [Concomitant]
  4. PRIMIDONE [Concomitant]
  5. BACLOFEN [Concomitant]

REACTIONS (12)
  - Joint lock [None]
  - Muscle spasms [None]
  - Fall [None]
  - Laceration [None]
  - Loss of consciousness [None]
  - Concussion [None]
  - Nasopharyngitis [None]
  - Cerebral haemorrhage [None]
  - Alcohol use [None]
  - Musculoskeletal stiffness [None]
  - Craniocerebral injury [None]
  - Convulsion [None]
